FAERS Safety Report 8848027 (Version 1)
Quarter: 2012Q4

REPORT INFORMATION
  Report Type: 
  Country: JP (occurrence: JP)
  Receive Date: 20121018
  Receipt Date: 20121018
  Transmission Date: 20130627
  Serious: Yes (Hospitalization)
  Sender: FDA-Public Use
  Company Number: JP-PFIZER INC-2012248951

PATIENT
  Age: 7 None
  Sex: Male

DRUGS (4)
  1. IRINOTECAN HCL [Suspect]
     Indication: GASTRIC CANCER
     Dosage: 150 mg/m2, UNK
     Dates: start: 2009
  2. GIMERACIL\OTERACIL\TEGAFUR [Suspect]
     Indication: GASTRIC CANCER
     Dosage: 80 mg/m2, UNK
     Dates: start: 200904
  3. DEXAMETHASONE [Concomitant]
     Indication: NAUSEA
     Dosage: 4 mg, 1x/day
  4. DEXAMETHASONE [Concomitant]
     Indication: MALAISE

REACTIONS (4)
  - Pneumocystis jiroveci pneumonia [Not Recovered/Not Resolved]
  - Respiratory failure [Recovering/Resolving]
  - Nausea [Recovered/Resolved]
  - Malaise [Recovered/Resolved]
